FAERS Safety Report 4571946-9 (Version None)
Quarter: 2005Q1

REPORT INFORMATION
  Report Type: 
  Country: None (occurrence: None)
  Receive Date: 20050202
  Receipt Date: 20050118
  Transmission Date: 20050727
  Serious: Yes (Hospitalization)
  Sender: FDA-Public Use
  Company Number: USA021225240

PATIENT
  Age: 74 Year
  Sex: Female
  Weight: 74 kg

DRUGS (8)
  1. FORTEO [Suspect]
     Indication: OSTEOPOROSIS
     Dosage: 20 UG/1 DAY
     Dates: start: 20021220, end: 20041228
  2. EVISTA [Suspect]
     Indication: OSTEOPOROSIS
  3. PACERONE [Concomitant]
  4. COZAAR(LOSARTA POTASSIUM) [Concomitant]
  5. SYNTHROID [Concomitant]
  6. FOLIC ACID [Concomitant]
  7. ASPIRIN [Concomitant]
  8. GLUCOSAMINE CHONDROITIN [Concomitant]

REACTIONS (7)
  - DIZZINESS [None]
  - FRACTURE [None]
  - MECHANICAL COMPLICATION OF IMPLANT [None]
  - MEDICAL DEVICE COMPLICATION [None]
  - SPINAL FRACTURE [None]
  - SURGICAL PROCEDURE REPEATED [None]
  - TIBIA FRACTURE [None]
